FAERS Safety Report 14524045 (Version 1)
Quarter: 2018Q1

REPORT INFORMATION
  Report Type: Spontaneous
  Country: US (occurrence: US)
  Receive Date: 20180213
  Receipt Date: 20180213
  Transmission Date: 20180509
  Serious: No
  Sender: FDA-Public Use
  Company Number: US-ASTRAZENECA-2018SE18446

PATIENT
  Age: 1530 Week
  Sex: Male
  Weight: 90.7 kg

DRUGS (2)
  1. SYMBICORT [Suspect]
     Active Substance: BUDESONIDE\FORMOTEROL FUMARATE DIHYDRATE
     Indication: DYSPNOEA
     Dosage: SYMBICORT 80/4.5 MCG ,TWO TIMES A DAY.
     Route: 055
     Dates: start: 20180128
  2. SYMBICORT [Suspect]
     Active Substance: BUDESONIDE\FORMOTEROL FUMARATE DIHYDRATE
     Indication: ASTHMA
     Dosage: SYMBICORT 80/4.5 MCG ,TWO TIMES A DAY.
     Route: 055
     Dates: start: 20180128

REACTIONS (7)
  - Off label use [Not Recovered/Not Resolved]
  - Dyspnoea [Unknown]
  - Drug dose omission [Not Recovered/Not Resolved]
  - Device malfunction [Not Recovered/Not Resolved]
  - Feeling abnormal [Not Recovered/Not Resolved]
  - Choking sensation [Not Recovered/Not Resolved]
  - Product use in unapproved indication [Not Recovered/Not Resolved]

NARRATIVE: CASE EVENT DATE: 20180130
